FAERS Safety Report 8170229-8 (Version None)
Quarter: 2012Q1

REPORT INFORMATION
  Report Type: 
  Country: None (occurrence: None)
  Receive Date: 20120106
  Receipt Date: 20101204
  Transmission Date: 20120608
  Serious: Yes (Hospitalization)
  Sender: FDA-Public Use
  Company Number: 109855

PATIENT
  Age: 50 Year
  Sex: Male

DRUGS (1)
  1. CISPLATIN [Suspect]
     Indication: HEAD AND NECK CANCER
     Dosage: 158MG
     Dates: start: 20100726

REACTIONS (3)
  - VOMITING [None]
  - NAUSEA [None]
  - FEBRILE NEUTROPENIA [None]
